FAERS Safety Report 22201380 (Version 1)
Quarter: 2023Q2

REPORT INFORMATION
  Report Type: Report from Study
  Country: US (occurrence: US)
  Receive Date: 20230412
  Receipt Date: 20230412
  Transmission Date: 20230722
  Serious: Yes (Death, Other)
  Sender: FDA-Public Use
  Company Number: US-BRISTOL-MYERS SQUIBB COMPANY-2023-049377

PATIENT

DRUGS (6)
  1. AZACITIDINE [Suspect]
     Active Substance: AZACITIDINE
     Indication: Acute myeloid leukaemia
     Dosage: ON DAYS 1-7
  2. VENETOCLAX [Suspect]
     Active Substance: VENETOCLAX
     Indication: Acute myeloid leukaemia
     Dosage: ON DAYS 1-28
     Route: 048
  3. VENETOCLAX [Suspect]
     Active Substance: VENETOCLAX
     Dosage: RAMP-UP PHASE ON DAY 1
     Route: 048
  4. VENETOCLAX [Suspect]
     Active Substance: VENETOCLAX
     Dosage: RAMP-UP PHASE ON DAY 2
     Route: 048
  5. VENETOCLAX [Suspect]
     Active Substance: VENETOCLAX
     Dosage: RAMP-UP PHASE ON DAY 3
     Route: 048
  6. EPRENETAPOPT [Suspect]
     Active Substance: EPRENETAPOPT
     Indication: Acute myeloid leukaemia
     Dosage: ON DAYS 1-4
     Route: 042

REACTIONS (1)
  - Septic shock [Fatal]
